FAERS Safety Report 25606347 (Version 2)
Quarter: 2025Q3

REPORT INFORMATION
  Report Type: Spontaneous
  Country: US (occurrence: US)
  Receive Date: 20250725
  Receipt Date: 20250818
  Transmission Date: 20251021
  Serious: Yes (Hospitalization, Other)
  Sender: TEVA
  Company Number: US-TEVA-VS-3353384

PATIENT
  Age: 39 Year
  Sex: Male

DRUGS (1)
  1. UZEDY [Suspect]
     Active Substance: RISPERIDONE
     Indication: Product used for unknown indication
     Dosage: 250/0.7MG/ML
     Route: 065
     Dates: start: 202409, end: 20250716

REACTIONS (4)
  - Injection site necrosis [Unknown]
  - Localised infection [Unknown]
  - Injection site discolouration [Unknown]
  - Abscess [Unknown]

NARRATIVE: CASE EVENT DATE: 20250101
